FAERS Safety Report 7280734-4 (Version None)
Quarter: 2011Q1

REPORT INFORMATION
  Report Type: 
  Country: None (occurrence: None)
  Receive Date: 20110208
  Receipt Date: 20110203
  Transmission Date: 20110831
  Serious: Yes (Hospitalization)
  Sender: FDA-Public Use
  Company Number: B0698322A

PATIENT
  Sex: Male

DRUGS (1)
  1. AUGMENTIN '125' [Suspect]
     Indication: INFECTION
     Route: 065
     Dates: start: 20110107, end: 20110112

REACTIONS (4)
  - TOXICITY TO VARIOUS AGENTS [None]
  - OEDEMA [None]
  - HYPERSENSITIVITY [None]
  - SKIN DISORDER [None]
